FAERS Safety Report 9258668 (Version 14)
Quarter: 2014Q3

REPORT INFORMATION
  Report Type: Spontaneous
  Country: US (occurrence: US)
  Receive Date: 20130426
  Receipt Date: 20140905
  Transmission Date: 20150326
  Serious: Yes (Hospitalization, Other)
  Sender: FDA-Public Use
  Company Number: US-009507513-1304USA014856

PATIENT
  Sex: Male
  Weight: 87.53 kg

DRUGS (2)
  1. PROPECIA [Suspect]
     Active Substance: FINASTERIDE
     Dosage: 5MG, UNK
     Route: 048
  2. PROPECIA [Suspect]
     Active Substance: FINASTERIDE
     Indication: ALOPECIA
     Dosage: 1 MG, UNK
     Route: 048

REACTIONS (55)
  - Prostate cancer [Unknown]
  - Laceration [Unknown]
  - Upper-airway cough syndrome [Unknown]
  - Erectile dysfunction [Unknown]
  - Rotator cuff repair [Unknown]
  - Cough [Unknown]
  - Intervertebral disc disorder [Unknown]
  - Urinary retention [Not Recovered/Not Resolved]
  - Urinary hesitation [Not Recovered/Not Resolved]
  - Thyroid disorder [Unknown]
  - Drug eruption [Unknown]
  - Urinary tract infection [Unknown]
  - Spinal osteoarthritis [Unknown]
  - Renal colic [Unknown]
  - Pulmonary mass [Recovered/Resolved]
  - Soft tissue mass [Unknown]
  - Hypothyroidism [Unknown]
  - Metastatic neoplasm [Unknown]
  - Prostatitis [Unknown]
  - Upper respiratory tract infection [Unknown]
  - Bronchitis [Unknown]
  - Laceration [Unknown]
  - Joint swelling [Unknown]
  - Depression [Unknown]
  - Rash [Unknown]
  - Sexual dysfunction [Unknown]
  - Radical prostatectomy [Unknown]
  - Essential hypertension [Unknown]
  - Pollakiuria [Unknown]
  - Renal cyst [Unknown]
  - Osteoarthritis [Unknown]
  - Neoplasm recurrence [Unknown]
  - Haemorrhoidal haemorrhage [Unknown]
  - Candida infection [Unknown]
  - Pollakiuria [Unknown]
  - Prostatic specific antigen increased [Unknown]
  - Breast tenderness [Unknown]
  - Lymphadenectomy [Unknown]
  - Renal cyst [Unknown]
  - Hepatic cyst [Unknown]
  - Calcinosis [Unknown]
  - Acute sinusitis [Unknown]
  - Headache [Unknown]
  - Hiatus hernia [Unknown]
  - Pulmonary mass [Unknown]
  - Urinary tract disorder [Unknown]
  - Erectile dysfunction [Unknown]
  - Contusion [Unknown]
  - Inappropriate schedule of drug administration [Unknown]
  - Shoulder operation [Unknown]
  - Bronchiectasis [Unknown]
  - Aortic arteriosclerosis [Unknown]
  - Urinary tract infection [Unknown]
  - Radiotherapy [Unknown]
  - Radiation skin injury [Unknown]

NARRATIVE: CASE EVENT DATE: 2001
